FAERS Safety Report 9857318 (Version 2)
Quarter: 2014Q1

REPORT INFORMATION
  Report Type: Report from Study
  Country: US (occurrence: US)
  Receive Date: 20140130
  Receipt Date: 20140130
  Transmission Date: 20141002
  Serious: Yes (Other)
  Sender: FDA-Public Use
  Company Number: PHEH2014US000462

PATIENT
  Age: 54 Year
  Sex: Male
  Weight: 77.98 kg

DRUGS (1)
  1. GILENYA [Suspect]
     Indication: MULTIPLE SCLEROSIS
     Dosage: 0.5 MG, QD
     Route: 048
     Dates: start: 20131211

REACTIONS (6)
  - Glaucoma [Unknown]
  - Visual impairment [Unknown]
  - Halo vision [Unknown]
  - Photopsia [Unknown]
  - Photophobia [Unknown]
  - Vision blurred [Unknown]
